FAERS Safety Report 4777433-7 (Version None)
Quarter: 2005Q3

REPORT INFORMATION
  Report Type: 
  Country: None (occurrence: None)
  Receive Date: 20050923
  Receipt Date: 20050916
  Transmission Date: 20060218
  Serious: Yes (Other)
  Sender: FDA-Public Use
  Company Number: PHBS2005JP13868

PATIENT
  Age: 70 Year
  Sex: Female

DRUGS (2)
  1. SLOW-K [Suspect]
     Indication: HYPOKALAEMIA
     Dosage: 2.4 G, QD
     Route: 048
     Dates: start: 20030201, end: 20050816
  2. LASIX [Concomitant]
     Indication: CARDIAC FAILURE CONGESTIVE
     Dosage: 20 MG, QD
     Route: 048
     Dates: start: 20030201

REACTIONS (4)
  - DILATATION VENTRICULAR [None]
  - GASTROOESOPHAGEAL REFLUX DISEASE [None]
  - OESOPHAGEAL DISCOMFORT [None]
  - OESOPHAGEAL ULCER [None]
